FAERS Safety Report 13694355 (Version 2)
Quarter: 2017Q2

REPORT INFORMATION
  Report Type: Spontaneous
  Country: BR (occurrence: BR)
  Receive Date: 20170627
  Receipt Date: 20170630
  Transmission Date: 20170830
  Serious: Yes (Death, Hospitalization, Other)
  Sender: FDA-Public Use
  Company Number: BR-BIOMARINAP-BR-2017-114479

PATIENT
  Sex: Female
  Weight: 13 kg

DRUGS (12)
  1. SIMETHICONE (DIMETHICONE) [Concomitant]
     Active Substance: DIMETHICONE
     Indication: FLATULENCE
     Dosage: 18 GTT, UNK
  2. ENALAPRIL [Concomitant]
     Active Substance: ENALAPRIL
     Indication: INFUSION RELATED REACTION
     Dosage: UNK
     Dates: start: 20170622
  3. ATROVENT [Concomitant]
     Active Substance: IPRATROPIUM BROMIDE
     Indication: DYSPNOEA
     Dosage: 2 GTT, UNK
     Dates: start: 20170623
  4. GROVIT B [Concomitant]
     Indication: VITAMIN SUPPLEMENTATION
     Dosage: 10 ML, QD
  5. OTOSPORIN [Concomitant]
     Active Substance: HYDROCORTISONE\NEOMYCIN SULFATE\POLYMYXIN B SULFATE
     Indication: EAR DISORDER
     Dosage: UNK, TID
  6. SALINE                             /00075401/ [Concomitant]
     Active Substance: SODIUM CHLORIDE
     Indication: DYSPNOEA
     Dosage: UNK
     Dates: start: 20170623
  7. MONTELUKAST [Concomitant]
     Active Substance: MONTELUKAST SODIUM
     Indication: INFUSION RELATED REACTION
     Dosage: UNK
     Dates: start: 20170622
  8. RANITIDINE. [Concomitant]
     Active Substance: RANITIDINE
     Indication: INFUSION RELATED REACTION
     Dosage: UNK
     Dates: start: 20170622
  9. NAGLAZYME [Suspect]
     Active Substance: GALSULFASE
     Indication: MUCOPOLYSACCHARIDOSIS VI
     Dosage: 20 MG, QW
     Route: 042
     Dates: start: 20140902
  10. OXCARBAZEPINE. [Concomitant]
     Active Substance: OXCARBAZEPINE
     Indication: SEIZURE
     Dosage: 900 MG, QD
  11. PURAN [Concomitant]
     Active Substance: LEVOTHYROXINE SODIUM
     Indication: THYROID DISORDER
     Dosage: 12.5 MG, QD
  12. MINILAX [Concomitant]
     Indication: CONSTIPATION
     Dosage: UNK
     Dates: start: 201611

REACTIONS (12)
  - Respiratory arrest [Unknown]
  - Dyspnoea [Unknown]
  - Nausea [Unknown]
  - Hypotonia [Unknown]
  - Rales [Unknown]
  - Cough [Unknown]
  - Pollakiuria [Unknown]
  - Insomnia [Unknown]
  - Malaise [Unknown]
  - Pneumonia bacterial [Fatal]
  - Chest discomfort [Unknown]
  - Influenza [Recovering/Resolving]
